FAERS Safety Report 10443281 (Version 3)
Quarter: 2014Q4

REPORT INFORMATION
  Report Type: Spontaneous
  Country: US (occurrence: US)
  Receive Date: 20140910
  Receipt Date: 20141028
  Transmission Date: 20150528
  Serious: Yes (Death, Hospitalization, Other)
  Sender: FDA-Public Use
  Company Number: US-AUROBINDO PHARMA LTD, UK-AUR-APL-2014-05576

PATIENT
  Sex: Female
  Weight: 63.5 kg

DRUGS (9)
  1. SYNTHROID [Suspect]
     Active Substance: LEVOTHYROXINE SODIUM
     Dosage: 0.05 MG, UNK
     Dates: start: 2014
  2. ERYTHROMYCIN. [Concomitant]
     Active Substance: ERYTHROMYCIN
     Indication: PRODUCT USED FOR UNKNOWN INDICATION
     Dosage: UNK
     Route: 065
  3. SYNTHROID [Suspect]
     Active Substance: LEVOTHYROXINE SODIUM
     Indication: HYPOTHYROIDISM
     Dosage: 0.075 MG, UNK
     Route: 065
     Dates: start: 1990, end: 2014
  4. TIKOSYN [Suspect]
     Active Substance: DOFETILIDE
     Indication: ATRIAL FIBRILLATION
     Dosage: 125 ?G, TWO TIMES A DAY
     Route: 048
     Dates: start: 20140426, end: 20140519
  5. TIKOSYN [Suspect]
     Active Substance: DOFETILIDE
     Dosage: 250 ?G, TWO TIMES A DAY
     Route: 048
     Dates: start: 20140519, end: 20140527
  6. WARFARIN [Suspect]
     Active Substance: WARFARIN
     Indication: PRODUCT USED FOR UNKNOWN INDICATION
     Dosage: UNK UNK,UNK,
     Route: 065
     Dates: end: 2014
  7. LISINOPRIL. [Suspect]
     Active Substance: LISINOPRIL
     Indication: HYPERTENSION
     Dosage: 10 MG, UNK
     Route: 065
  8. ZOCOR [Suspect]
     Active Substance: SIMVASTATIN
     Indication: PRODUCT USED FOR UNKNOWN INDICATION
     Dosage: 20 MG, UNK
     Route: 065
  9. METOPROLOL [Concomitant]
     Active Substance: METOPROLOL
     Indication: PRODUCT USED FOR UNKNOWN INDICATION
     Dosage: 6.25 MG (QUARTER OF 25 MG TABLET)
     Route: 065

REACTIONS (9)
  - Atrial fibrillation [Unknown]
  - Hyperthyroidism [Unknown]
  - Atrial fibrillation [Unknown]
  - Drug ineffective [Unknown]
  - Heart rate irregular [Unknown]
  - Heart rate decreased [Unknown]
  - Joint warmth [Unknown]
  - Gait disturbance [Unknown]
  - Blood pressure inadequately controlled [Unknown]

NARRATIVE: CASE EVENT DATE: 2014
